FAERS Safety Report 6690385-8 (Version None)
Quarter: 2010Q2

REPORT INFORMATION
  Report Type: 
  Country: None (occurrence: None)
  Receive Date: 20100421
  Receipt Date: 20100407
  Transmission Date: 20101027
  Serious: Yes (Hospitalization, Other)
  Sender: FDA-Public Use
  Company Number: US-CELGENEUS-163-21880-09110362

PATIENT
  Sex: Female

DRUGS (4)
  1. REVLIMID [Suspect]
     Route: 048
     Dates: start: 20090429, end: 20090530
  2. REVLIMID [Suspect]
     Indication: BONE MARROW RETICULIN FIBROSIS
  3. PREDNISONE TAB [Concomitant]
     Route: 065
  4. PREDNISONE TAB [Concomitant]
     Indication: BONE MARROW RETICULIN FIBROSIS

REACTIONS (3)
  - NAUSEA [None]
  - NEOPLASM PROGRESSION [None]
  - UVEITIS [None]
